FAERS Safety Report 4887513-3 (Version None)
Quarter: 2006Q1

REPORT INFORMATION
  Report Type: 
  Country: None (occurrence: None)
  Receive Date: 20060123
  Receipt Date: 20060111
  Transmission Date: 20060701
  Serious: Yes (Hospitalization)
  Sender: FDA-Public Use
  Company Number: US-JNJFOC-20060103227

PATIENT
  Sex: Female
  Weight: 58.97 kg

DRUGS (3)
  1. DURAGESIC-100 [Suspect]
     Route: 062
  2. ACTIQ [Concomitant]
     Indication: PAIN
  3. TIZANIDINE HCL [Concomitant]
     Route: 048

REACTIONS (1)
  - INTERVERTEBRAL DISC DEGENERATION [None]
